FAERS Safety Report 9718590 (Version 2)
Quarter: 2013Q4

REPORT INFORMATION
  Report Type: Spontaneous
  Country: FR (occurrence: FR)
  Receive Date: 20131127
  Receipt Date: 20131219
  Transmission Date: 20140711
  Serious: Yes (Other)
  Sender: FDA-Public Use
  Company Number: FR-PFIZER INC-2013335641

PATIENT
  Age: 27 Year
  Sex: Female
  Weight: 64 kg

DRUGS (1)
  1. ZOLOFT [Suspect]
     Indication: DEPRESSION
     Dosage: 50 MG, 1X/DAY
     Route: 048
     Dates: start: 20130611, end: 20130627

REACTIONS (3)
  - Breast engorgement [Unknown]
  - Lymphadenopathy [Unknown]
  - Breast pain [Unknown]
